FAERS Safety Report 5201721-3 (Version None)
Quarter: 2006Q4

REPORT INFORMATION
  Report Type: 
  Country: None (occurrence: None)
  Receive Date: 20061012
  Receipt Date: 20051129
  Transmission Date: 20070319
  Serious: Yes (Other)
  Sender: FDA-Public Use
  Company Number: US-JNJFOC-20051106546

PATIENT
  Age: 81 Year
  Sex: Female
  Weight: 45.8133 kg

DRUGS (2)
  1. NESIRITIDE (NESITIRIDE) INJECTION [Suspect]
     Indication: CARDIAC FAILURE CONGESTIVE
     Dosage: 0.01 MG/KG, 1 IN 1 MINUTE, INTRAVENOUS
     Route: 042
     Dates: start: 20040215, end: 20040216
  2. LABETALOL HCL [Concomitant]

REACTIONS (2)
  - HYPOTENSION [None]
  - INFUSION RELATED REACTION [None]
